FAERS Safety Report 19818200 (Version 1)
Quarter: 2021Q3

REPORT INFORMATION
  Report Type: Spontaneous
  Country: ES (occurrence: ES)
  Receive Date: 20210911
  Receipt Date: 20210911
  Transmission Date: 20211014
  Serious: Yes (Life-Threatening, Hospitalization)
  Sender: FDA-Public Use
  Company Number: ES-TEVA-2021-ES-1950702

PATIENT
  Age: 16 Year
  Sex: Female

DRUGS (4)
  1. CICLOSPORINA (406A) [Concomitant]
     Active Substance: CYCLOSPORINE
     Indication: JUVENILE IDIOPATHIC ARTHRITIS
     Dosage: DOSAGE: 100 MILLIGRAM (1 CAPSULE) EVERY 12 H FOR 14 DAYS)
     Route: 048
     Dates: start: 20210612, end: 20210622
  2. ROACTEMRA [Concomitant]
     Active Substance: TOCILIZUMAB
     Indication: JUVENILE IDIOPATHIC ARTHRITIS
     Dosage: 480 MG
     Route: 043
     Dates: start: 20210612, end: 20210612
  3. ETOPOSIDO (518A) [Suspect]
     Active Substance: ETOPOSIDE
     Indication: JUVENILE IDIOPATHIC ARTHRITIS
     Dosage: 200 MG
     Route: 042
     Dates: start: 20210616, end: 20210616
  4. ETOPOSIDO (518A) [Suspect]
     Active Substance: ETOPOSIDE
     Dosage: 200 MG
     Route: 042
     Dates: start: 20210621, end: 20210621

REACTIONS (1)
  - Agranulocytosis [Recovered/Resolved]

NARRATIVE: CASE EVENT DATE: 20210622
